FAERS Safety Report 14398191 (Version 5)
Quarter: 2018Q2

REPORT INFORMATION
  Report Type: Report from Study
  Country: US (occurrence: US)
  Receive Date: 20180116
  Receipt Date: 20180607
  Transmission Date: 20180711
  Serious: Yes (Hospitalization, Other)
  Sender: FDA-Public Use
  Company Number: US-ACTELION-A-NJ2018-165646

PATIENT
  Age: 62 Year
  Sex: Female
  Weight: 61.22 kg

DRUGS (3)
  1. ITRACONAZOLE. [Interacting]
     Active Substance: ITRACONAZOLE
     Indication: EXPOSURE TO MOULD
     Dosage: UNK
     Route: 065
  2. OPSUMIT [Suspect]
     Active Substance: MACITENTAN
     Indication: PULMONARY HYPERTENSION
     Dosage: 10 MG, QD
     Route: 048
     Dates: start: 20170306
  3. UPTRAVI [Suspect]
     Active Substance: SELEXIPAG
     Indication: PULMONARY HYPERTENSION
     Dosage: 1600 MCG, BID
     Route: 048

REACTIONS (23)
  - Chest discomfort [Unknown]
  - Eye infection [Unknown]
  - Parainfluenzae virus infection [Unknown]
  - Pneumonia [Unknown]
  - Systemic lupus erythematosus [Unknown]
  - Feeling abnormal [Unknown]
  - Respiratory syncytial virus infection [Unknown]
  - Drug interaction [Unknown]
  - Dyspnoea [Recovering/Resolving]
  - Malaise [Unknown]
  - Vocal cord disorder [Unknown]
  - Pneumocystis jirovecii pneumonia [Unknown]
  - Pleurisy [Unknown]
  - Joint injury [Unknown]
  - Eye disorder [Unknown]
  - Influenza like illness [Not Recovered/Not Resolved]
  - Pyrexia [Unknown]
  - Exposure to mould [Unknown]
  - Dizziness [Unknown]
  - Arthropathy [Unknown]
  - Sinus congestion [Unknown]
  - Vocal cord thickening [Unknown]
  - Dysphonia [Unknown]

NARRATIVE: CASE EVENT DATE: 201801
